FAERS Safety Report 21021757 (Version 1)
Quarter: 2022Q2

REPORT INFORMATION
  Report Type: Spontaneous
  Country: BR (occurrence: BR)
  Receive Date: 20220629
  Receipt Date: 20220629
  Transmission Date: 20220721
  Serious: Yes (Other)
  Sender: FDA-Public Use
  Company Number: BR-ORGANON-O2206BRA002246

PATIENT
  Sex: Female

DRUGS (1)
  1. ETONOGESTREL [Suspect]
     Active Substance: ETONOGESTREL
     Dosage: 1 IMPLANT
     Route: 059
     Dates: start: 20220418, end: 20220613

REACTIONS (3)
  - Device expulsion [Recovered/Resolved]
  - Haemorrhage [Unknown]
  - Implant site inflammation [Unknown]

NARRATIVE: CASE EVENT DATE: 20220101
